FAERS Safety Report 23667416 (Version 1)
Quarter: 2024Q1

REPORT INFORMATION
  Report Type: Spontaneous
  Country: US (occurrence: None)
  Receive Date: 20240325
  Receipt Date: 20240325
  Transmission Date: 20240410
  Serious: No
  Sender: FDA-Public Use
  Company Number: 2024A068859

PATIENT

DRUGS (3)
  1. FASLODEX [Suspect]
     Active Substance: FULVESTRANT
     Route: 030
  2. OMEPRAZOLE [Suspect]
     Active Substance: OMEPRAZOLE
     Indication: Oesophageal dilatation
  3. IBRANCE [Suspect]
     Active Substance: PALBOCICLIB
     Route: 048
     Dates: start: 201903

REACTIONS (5)
  - Oesophageal dilatation [Unknown]
  - Hypertension [Unknown]
  - Underweight [Unknown]
  - Injection site nodule [Recovered/Resolved]
  - White blood cell count decreased [Unknown]
